FAERS Safety Report 10660683 (Version 1)
Quarter: 2014Q4

REPORT INFORMATION
  Report Type: Spontaneous
  Country: US (occurrence: US)
  Receive Date: 20141217
  Receipt Date: 20141217
  Transmission Date: 20150529
  Serious: No
  Sender: FDA-Public Use
  Company Number: US-GLAXOSMITHKLINE-A1090265A

PATIENT

DRUGS (5)
  1. RADIATION [Concomitant]
     Active Substance: RADIATION THERAPY
  2. VOTRIENT [Suspect]
     Active Substance: PAZOPANIB HYDROCHLORIDE
     Indication: RENAL CANCER
     Route: 048
     Dates: start: 20101128
  3. IL-2 [Concomitant]
     Active Substance: ALDESLEUKIN
  4. AFINITOR [Concomitant]
     Active Substance: EVEROLIMUS
  5. SUNITINIB [Concomitant]
     Active Substance: SUNITINIB

REACTIONS (2)
  - Fibroma [Unknown]
  - Disease progression [Unknown]
